FAERS Safety Report 15798312 (Version 1)
Quarter: 2018Q4

REPORT INFORMATION
  Report Type: Spontaneous
  Country: US (occurrence: US)
  Receive Date: 20181231
  Receipt Date: 20181231
  Transmission Date: 20190205
  Serious: No
  Sender: FDA-Public Use
  Company Number: None

PATIENT

DRUGS (2)
  1. ANTICOAGULANT SODIUM CITRATE [Suspect]
     Active Substance: SODIUM CITRATE
     Dosage: ?          OTHER FREQUENCY:IV BAG;OTHER ROUTE:INJECTION?
  2. ANTICOAGULANT CITRATE DEXTROSE SOLUTION (ACD) NOS [Suspect]
     Active Substance: CITRIC ACID MONOHYDRATE\DEXTROSE\SODIUM CITRATE
     Dosage: ?          OTHER FREQUENCY:IV BAG;OTHER ROUTE:INJECTION?

REACTIONS (3)
  - Product label confusion [None]
  - Wrong product stored [None]
  - Intercepted product dispensing error [None]
